FAERS Safety Report 4295399-3 (Version None)
Quarter: 2004Q1

REPORT INFORMATION
  Report Type: 
  Country: None (occurrence: None)
  Receive Date: 20040216
  Receipt Date: 20030710
  Transmission Date: 20041129
  Serious: No
  Sender: FDA-Public Use
  Company Number: US-GLAXOSMITHKLINE-A0417679A

PATIENT
  Age: 32 Year
  Sex: Female
  Weight: 84.1 kg

DRUGS (1)
  1. LAMICTAL [Suspect]
     Indication: BIPOLAR DISORDER
     Dosage: 50MG AT NIGHT
     Route: 048
     Dates: start: 20030614, end: 20030701

REACTIONS (1)
  - ALOPECIA [None]
